FAERS Safety Report 18063254 (Version 1)
Quarter: 2020Q3

REPORT INFORMATION
  Report Type: Spontaneous
  Country: CA (occurrence: CA)
  Receive Date: 20200723
  Receipt Date: 20200723
  Transmission Date: 20201103
  Serious: Yes (Life-Threatening, Hospitalization)
  Sender: FDA-Public Use
  Company Number: CA-TEVA-2020-CA-1803544

PATIENT
  Age: 34 Year
  Sex: Female
  Weight: 40 kg

DRUGS (1)
  1. CIPROFLOXACIN LACTATE [Suspect]
     Active Substance: CIPROFLOXACIN LACTATE
     Indication: URINARY TRACT INFECTION
     Dosage: 500 MILLIGRAM DAILY;
     Route: 048

REACTIONS (8)
  - Vision blurred [Unknown]
  - Eye pruritus [Unknown]
  - Palpitations [Unknown]
  - Pruritus [Unknown]
  - Swelling of eyelid [Unknown]
  - Asthenia [Unknown]
  - Rash macular [Unknown]
  - Dyspnoea [Unknown]
